FAERS Safety Report 6570709-2 (Version None)
Quarter: 2010Q1

REPORT INFORMATION
  Report Type: 
  Country: None (occurrence: None)
  Receive Date: 20100204
  Receipt Date: 20100127
  Transmission Date: 20100710
  Serious: Yes (Hospitalization)
  Sender: FDA-Public Use
  Company Number: B0594753A

PATIENT
  Sex: Male
  Weight: 66.7 kg

DRUGS (6)
  1. LAPATINIB [Suspect]
     Dosage: 750MG PER DAY
     Route: 048
     Dates: start: 20090630
  2. CISPLATIN [Suspect]
     Dosage: 130MG PER DAY
     Route: 042
     Dates: start: 20090701
  3. GEMCITABINE [Suspect]
     Dosage: 1800MG PER DAY
     Route: 042
     Dates: start: 20090630
  4. PANTOPRAZOLE [Concomitant]
     Indication: DYSPEPSIA
     Dosage: 40MG PER DAY
     Route: 048
     Dates: start: 20090504
  5. SIMVASTATIN [Concomitant]
     Dosage: 10MG PER DAY
     Route: 048
     Dates: start: 20090504
  6. SELEXID [Concomitant]
     Indication: URINARY TRACT INFECTION
     Dosage: 400MG THREE TIMES PER DAY
     Route: 048
     Dates: start: 20090909, end: 20090917

REACTIONS (2)
  - CHEST PAIN [None]
  - PNEUMONIA [None]
